FAERS Safety Report 8716232 (Version 3)
Quarter: 2013Q1

REPORT INFORMATION
  Report Type: Report from Study
  Country: JP (occurrence: JP)
  Receive Date: 20120810
  Receipt Date: 20130206
  Transmission Date: 20140127
  Serious: Yes (Other)
  Sender: FDA-Public Use
  Company Number: JP-009507513-1207JPN007956

PATIENT
  Age: 71 Year
  Sex: Female
  Weight: 52 kg

DRUGS (9)
  1. PEGINTRON [Suspect]
     Indication: CHRONIC HEPATITIS C
     Dosage: 1.5 MICROGRAM PER KILOGRAM,QW
     Route: 058
     Dates: start: 20120508, end: 20120528
  2. PEGINTRON [Suspect]
     Dosage: 1.3 MICROGRAM PER KILOGRAM,QW
     Route: 058
     Dates: start: 20120529, end: 20121022
  3. REBETOL [Suspect]
     Indication: CHRONIC HEPATITIS C
     Dosage: 600 MG, QD
     Route: 048
     Dates: start: 20120508, end: 20120618
  4. REBETOL [Suspect]
     Dosage: 400 MG, QD
     Route: 048
     Dates: start: 20120619, end: 20120716
  5. REBETOL [Suspect]
     Dosage: 200 MG, QD
     Route: 048
     Dates: start: 20120717, end: 20120903
  6. REBETOL [Suspect]
     Dosage: 400 MG, QD
     Route: 048
     Dates: start: 20120904, end: 20120924
  7. REBETOL [Suspect]
     Dosage: 400 MG, 600 MG/DAY ON ALTERNATE DAYS
     Route: 048
     Dates: start: 20120925, end: 20121022
  8. TELAVIC [Suspect]
     Indication: CHRONIC HEPATITIS C
     Dosage: 1500 MG, QD
     Route: 048
     Dates: start: 20120508, end: 20120730
  9. PENTASA [Concomitant]
     Indication: COLITIS ULCERATIVE
     Dosage: 1500 MG, QD
     Route: 048

REACTIONS (5)
  - Hyperuricaemia [Recovering/Resolving]
  - Anaemia [Recovered/Resolved]
  - Hyperuricaemia [Not Recovered/Not Resolved]
  - Rash [Recovering/Resolving]
  - Renal impairment [Recovered/Resolved]
